FAERS Safety Report 7032066-7 (Version None)
Quarter: 2010Q4

REPORT INFORMATION
  Report Type: 
  Country: None (occurrence: None)
  Receive Date: 20101007
  Receipt Date: 20100928
  Transmission Date: 20110411
  Serious: Yes (Hospitalization, Other)
  Sender: FDA-Public Use
  Company Number: US-ELI_LILLY_AND_COMPANY-US201009008102

PATIENT
  Age: 58 Year
  Sex: Male

DRUGS (3)
  1. EFFIENT [Suspect]
     Dosage: 60 MG, UNK
  2. EFFIENT [Suspect]
     Dosage: 10 MG, UNK
  3. ANTIHYPERTENSIVES [Concomitant]

REACTIONS (2)
  - FALL [None]
  - HAEMATOMA [None]
